FAERS Safety Report 8375697-4 (Version None)
Quarter: 2012Q2

REPORT INFORMATION
  Report Type: 
  Country: None (occurrence: None)
  Receive Date: 20120522
  Receipt Date: 20120516
  Transmission Date: 20120825
  Serious: No
  Sender: FDA-Public Use
  Company Number: US-PFIZER INC-2012119779

PATIENT
  Age: 64 Year
  Sex: Female
  Weight: 72.6 kg

DRUGS (3)
  1. DIAZEPAM [Concomitant]
     Indication: FIBROMYALGIA
     Dosage: UNK, AS NEEDED
  2. XALATAN [Suspect]
     Indication: GLAUCOMA
     Dosage: UNK
     Route: 047
     Dates: start: 19990101
  3. LATANOPROST [Suspect]
     Indication: GLAUCOMA
     Dosage: UNK
     Route: 047

REACTIONS (6)
  - EYE IRRITATION [None]
  - EYE INFLAMMATION [None]
  - OCULAR HYPERAEMIA [None]
  - EYE PAIN [None]
  - VISUAL IMPAIRMENT [None]
  - ABNORMAL SENSATION IN EYE [None]
